FAERS Safety Report 10476836 (Version 3)
Quarter: 2014Q4

REPORT INFORMATION
  Report Type: Report from Study
  Country: TW (occurrence: TW)
  Receive Date: 20140926
  Receipt Date: 20141125
  Transmission Date: 20150528
  Serious: Yes (Hospitalization, Other)
  Sender: FDA-Public Use
  Company Number: TW-ABBVIE-14K-153-1288224-00

PATIENT
  Age: 63 Year
  Sex: Male
  Weight: 75 kg

DRUGS (1)
  1. HUMIRA [Suspect]
     Active Substance: ADALIMUMAB
     Indication: ANKYLOSING SPONDYLITIS
     Route: 058
     Dates: start: 20110722, end: 20140728

REACTIONS (11)
  - Pneumonia [Recovered/Resolved]
  - Cholecystitis acute [Recovered/Resolved]
  - Infectious pleural effusion [Recovering/Resolving]
  - Tachypnoea [Recovered/Resolved]
  - Hepatic steatosis [Recovering/Resolving]
  - Ascites [Recovering/Resolving]
  - Hepatic cyst [Recovering/Resolving]
  - Klebsiella test positive [Recovering/Resolving]
  - Lung adenocarcinoma [Not Recovered/Not Resolved]
  - Renal cyst [Recovering/Resolving]
  - Streptococcus test positive [Recovering/Resolving]

NARRATIVE: CASE EVENT DATE: 20140820
